FAERS Safety Report 4435018-6 (Version None)
Quarter: 2004Q3

REPORT INFORMATION
  Report Type: 
  Country: None (occurrence: None)
  Receive Date: 20040827
  Receipt Date: 20040827
  Transmission Date: 20050211
  Serious: Yes (Other)
  Sender: FDA-Public Use
  Company Number: None

PATIENT
  Age: 35 Year
  Sex: Female
  Weight: 63.5036 kg

DRUGS (1)
  1. RECLAIM AF MEDICAL STRENGHT NDC LABORATORIES [Suspect]
     Indication: ONYCHOMYCOSIS
     Dosage: TWICE DAILY TOPICAL
     Route: 061
     Dates: start: 20040823, end: 20040823

REACTIONS (3)
  - APPLICATION SITE REACTION [None]
  - MEDICATION ERROR [None]
  - SKIN BURNING SENSATION [None]
